FAERS Safety Report 9508930 (Version 1)
Quarter: 2013Q3

REPORT INFORMATION
  Report Type: Spontaneous
  Country: None (occurrence: US)
  Receive Date: 20130909
  Receipt Date: 20130909
  Transmission Date: 20140515
  Serious: No
  Sender: FDA-Public Use
  Company Number: US-BRISTOL-MYERS SQUIBB COMPANY-19088004

PATIENT
  Sex: Female

DRUGS (2)
  1. ABILIFY [Suspect]
  2. GRAPEFRUIT [Interacting]

REACTIONS (2)
  - Food interaction [Unknown]
  - Adverse event [Unknown]
